FAERS Safety Report 5914850-3 (Version None)
Quarter: 2008Q4

REPORT INFORMATION
  Report Type: 
  Country: None (occurrence: None)
  Receive Date: 20081010
  Receipt Date: 20081001
  Transmission Date: 20090506
  Serious: Yes (Hospitalization, Other)
  Sender: FDA-Public Use
  Company Number: PHHY2008FI22681

PATIENT
  Sex: Female

DRUGS (2)
  1. EXELON [Suspect]
     Indication: DEMENTIA ALZHEIMER'S TYPE
     Dosage: 4.6 MG
     Dates: start: 20080801, end: 20080924
  2. TARCEVA [Interacting]
     Dosage: 150 MG, QD
     Dates: start: 20080401

REACTIONS (12)
  - ALANINE AMINOTRANSFERASE INCREASED [None]
  - BLOOD ALKALINE PHOSPHATASE INCREASED [None]
  - C-REACTIVE PROTEIN INCREASED [None]
  - CONDITION AGGRAVATED [None]
  - DRUG INTERACTION [None]
  - DRY SKIN [None]
  - GROWTH OF EYELASHES [None]
  - HAIR GROWTH ABNORMAL [None]
  - LUNG NEOPLASM MALIGNANT [None]
  - NAUSEA [None]
  - VOMITING [None]
  - WEIGHT DECREASED [None]
